FAERS Safety Report 4524312-6 (Version None)
Quarter: 2004Q4

REPORT INFORMATION
  Report Type: 
  Country: None (occurrence: None)
  Receive Date: 20041119
  Receipt Date: 20040910
  Transmission Date: 20050328
  Serious: Yes (Disabling)
  Sender: FDA-Public Use
  Company Number: 208952

PATIENT
  Age: 42 Year
  Sex: Male
  Weight: 81.6 kg

DRUGS (1)
  1. RAPTIVA [Suspect]
     Indication: PSORIASIS
     Dosage: 0.8 ML, , 1/WEEK, SUBCUTANEOUS
     Route: 058
     Dates: start: 20040402, end: 20040708

REACTIONS (1)
  - ARTHRITIS [None]
